FAERS Safety Report 21366299 (Version 1)
Quarter: 2022Q3

REPORT INFORMATION
  Report Type: Spontaneous
  Country: US (occurrence: US)
  Receive Date: 20220922
  Receipt Date: 20220922
  Transmission Date: 20221027
  Serious: Yes (Disabling)
  Sender: FDA-Public Use
  Company Number: US-PURDUE PHARMA-USA-2022-0293494

PATIENT
  Age: 68 Year
  Sex: Female

DRUGS (13)
  1. BUPRENORPHINE [Suspect]
     Active Substance: BUPRENORPHINE
     Indication: Back pain
     Dosage: 20 MCG/HR, WEEKLY
     Route: 062
     Dates: start: 20210101
  2. BUPRENORPHINE [Suspect]
     Active Substance: BUPRENORPHINE
     Indication: Pain
  3. OXYGEN [Concomitant]
     Active Substance: OXYGEN
     Indication: Chronic obstructive pulmonary disease
     Dosage: UNKNOWN
     Route: 065
     Dates: start: 20170503
  4. OXYGEN [Concomitant]
     Active Substance: OXYGEN
     Indication: Asthma
  5. OXYGEN [Concomitant]
     Active Substance: OXYGEN
     Indication: Emphysema
  6. ALBUTEROL [Concomitant]
     Active Substance: ALBUTEROL
     Indication: Chronic obstructive pulmonary disease
     Dosage: DAILY
     Route: 055
     Dates: start: 20170503
  7. ALBUTEROL [Concomitant]
     Active Substance: ALBUTEROL
     Indication: Asthma
  8. ALBUTEROL [Concomitant]
     Active Substance: ALBUTEROL
     Indication: Emphysema
  9. HYDROCODONE [Concomitant]
     Active Substance: HYDROCODONE
     Indication: Neck pain
     Dosage: 1 TABLET, Q6H (10/325MG)
     Route: 048
     Dates: start: 20170503
  10. HYDROCODONE [Concomitant]
     Active Substance: HYDROCODONE
     Indication: Back pain
  11. SYMBICORT [Concomitant]
     Active Substance: BUDESONIDE\FORMOTEROL FUMARATE DIHYDRATE
     Indication: Asthma
     Dosage: UNKNOWN
     Route: 055
  12. SYMBICORT [Concomitant]
     Active Substance: BUDESONIDE\FORMOTEROL FUMARATE DIHYDRATE
     Indication: Chronic obstructive pulmonary disease
  13. SYMBICORT [Concomitant]
     Active Substance: BUDESONIDE\FORMOTEROL FUMARATE DIHYDRATE
     Indication: Emphysema

REACTIONS (3)
  - Drug ineffective [Not Recovered/Not Resolved]
  - Product availability issue [Unknown]
  - Product adhesion issue [Unknown]

NARRATIVE: CASE EVENT DATE: 20220303
